FAERS Safety Report 7675634-1 (Version None)
Quarter: 2011Q3

REPORT INFORMATION
  Report Type: 
  Country: None (occurrence: None)
  Receive Date: 20110810
  Receipt Date: 20110808
  Transmission Date: 20111222
  Serious: Yes (Life-Threatening, Hospitalization, Disabling, Other)
  Sender: FDA-Public Use
  Company Number: JP-PFIZER INC-2011122548

PATIENT
  Age: 54 Year
  Sex: Female
  Weight: 78 kg

DRUGS (7)
  1. VARENICLINE TARTRATE [Interacting]
     Indication: SMOKING CESSATION THERAPY
     Dosage: 0.5 MG, 1X/DAY
     Route: 048
     Dates: start: 20110401, end: 20110403
  2. CRESTOR [Interacting]
     Indication: HYPERLIPIDAEMIA
     Dosage: 2.5 MG, 1X/DAY
     Route: 048
     Dates: start: 20100805, end: 20110526
  3. VARENICLINE TARTRATE [Interacting]
     Dosage: 2 MG, 1X/DAY
     Route: 048
     Dates: start: 20110408, end: 20110526
  4. IRZAIM [Concomitant]
     Dosage: UNK
     Dates: start: 20110222
  5. VARENICLINE TARTRATE [Interacting]
     Dosage: 1 MG, 1X/DAY
     Route: 048
     Dates: start: 20110404, end: 20110407
  6. BOUFUUTSUUSHOUSAN [Suspect]
     Indication: CONSTIPATION
     Dosage: UNK
     Route: 048
     Dates: start: 20100805, end: 20110526
  7. MUCOSOLVAN [Concomitant]
     Dosage: UNK
     Dates: start: 20110222

REACTIONS (2)
  - DRUG INTERACTION [None]
  - HEPATIC FUNCTION ABNORMAL [None]
